FAERS Safety Report 15099024 (Version 2)
Quarter: 2018Q3

REPORT INFORMATION
  Report Type: Report from Study
  Country: IT (occurrence: IT)
  Receive Date: 20180630
  Receipt Date: 20180702
  Transmission Date: 20181010
  Serious: Yes (Hospitalization)
  Sender: FDA-Public Use
  Company Number: IT-TEVA-2018-IT-890696

PATIENT
  Age: 42 Year
  Sex: Male

DRUGS (2)
  1. CITALOPRAM [Suspect]
     Active Substance: CITALOPRAM HYDROBROMIDE
     Route: 065
  2. TAVOR (LORAZEPAM) [Suspect]
     Active Substance: LORAZEPAM
     Route: 065

REACTIONS (3)
  - Poverty of speech [Unknown]
  - Drug abuse [Unknown]
  - Priapism [Unknown]

NARRATIVE: CASE EVENT DATE: 20180108
